FAERS Safety Report 7405473-8 (Version None)
Quarter: 2011Q2

REPORT INFORMATION
  Report Type: 
  Country: None (occurrence: None)
  Receive Date: 20110411
  Receipt Date: 20110404
  Transmission Date: 20111010
  Serious: Yes (Hospitalization)
  Sender: FDA-Public Use
  Company Number: AU-AMGEN-AUSSP2011017577

PATIENT
  Age: 58 Year
  Sex: Female

DRUGS (4)
  1. CYCLOPHOSPHAMIDE [Concomitant]
  2. ADRIAMYCIN PFS [Concomitant]
  3. TAXOL [Concomitant]
     Dosage: UNK UNK, QWK
  4. NEULASTA [Suspect]
     Indication: CHEMOTHERAPY

REACTIONS (1)
  - LEUKOCYTOCLASTIC VASCULITIS [None]
